FAERS Safety Report 22115844 (Version 1)
Quarter: 2023Q1

REPORT INFORMATION
  Report Type: Spontaneous
  Country: KR (occurrence: KR)
  Receive Date: 20230320
  Receipt Date: 20230320
  Transmission Date: 20230418
  Serious: Yes (Hospitalization)
  Sender: FDA-Public Use
  Company Number: KR-MYLANLABS-2023M1028634

PATIENT
  Age: 20 Year
  Sex: Male

DRUGS (3)
  1. AMLODIPINE [Suspect]
     Active Substance: AMLODIPINE BESYLATE
     Indication: Renovascular hypertension
     Dosage: UNK;  THE PATIENT WAS NOT RECEIVING ANY ANTIHYPERTENSIVE AT LAST FOLLOW-UP
     Route: 065
  2. LOSARTAN [Suspect]
     Active Substance: LOSARTAN
     Indication: Renovascular hypertension
     Dosage: UNK; THE PATIENT WAS NOT RECEIVING ANY ANTIHYPERTENSIVE AT LAST FOLLOW-UP
     Route: 065
  3. CARVEDILOL [Suspect]
     Active Substance: CARVEDILOL
     Indication: Renovascular hypertension
     Dosage: UNK; THE PATIENT WAS NOT RECEIVING ANY ANTIHYPERTENSIVE AT LAST FOLLOW-UP
     Route: 065

REACTIONS (1)
  - Drug ineffective [Unknown]
